FAERS Safety Report 9716741 (Version 1)
Quarter: 2013Q4

REPORT INFORMATION
  Report Type: Spontaneous
  Country: IT (occurrence: IT)
  Receive Date: 20131127
  Receipt Date: 20131127
  Transmission Date: 20140711
  Serious: Yes (Hospitalization)
  Sender: FDA-Public Use
  Company Number: IT-B.I. PHARMACEUTICALS,INC./RIDGEFIELD-2013-BI-38919IT

PATIENT
  Age: 93 Year
  Sex: Female

DRUGS (5)
  1. PRADAXA [Suspect]
     Indication: THROMBOSIS PROPHYLAXIS
     Dosage: 220 MG
     Route: 048
     Dates: start: 20131031, end: 20131115
  2. PARACETAMOL [Concomitant]
     Route: 048
  3. LASIX [Concomitant]
     Dosage: 25 MG
     Route: 048
  4. LANOXIN [Concomitant]
     Dosage: 0.125 MG
     Route: 048
  5. TRIATEC [Concomitant]
     Dosage: 5 MG
     Route: 048

REACTIONS (2)
  - Hypovolaemic shock [Not Recovered/Not Resolved]
  - Gastrointestinal haemorrhage [Not Recovered/Not Resolved]
